FAERS Safety Report 9711083 (Version 2)
Quarter: 2013Q4

REPORT INFORMATION
  Report Type: Spontaneous
  Country: US (occurrence: US)
  Receive Date: 20131126
  Receipt Date: 20131126
  Transmission Date: 20140711
  Serious: No
  Sender: FDA-Public Use
  Company Number: US-BRISTOL-MYERS SQUIBB COMPANY-18703306

PATIENT
  Age: 70 Year
  Sex: Female
  Weight: 95.24 kg

DRUGS (15)
  1. BYDUREON [Suspect]
     Indication: TYPE 2 DIABETES MELLITUS
     Dosage: THERAPY ON 13MAR13,19MAR13
     Route: 058
     Dates: start: 20130307
  2. LANTUS [Concomitant]
     Indication: TYPE 2 DIABETES MELLITUS
     Dosage: 1DF: 16 U
     Route: 058
  3. GLIMEPIRIDE [Concomitant]
     Indication: TYPE 2 DIABETES MELLITUS
     Route: 048
  4. BENAZEPRIL HCL [Concomitant]
     Indication: TYPE 2 DIABETES MELLITUS
     Route: 048
  5. PRAVASTATIN SODIUM [Concomitant]
     Indication: BLOOD CHOLESTEROL INCREASED
  6. LOVAZA [Concomitant]
     Indication: BLOOD CHOLESTEROL INCREASED
     Route: 048
  7. GAS-X [Concomitant]
     Indication: FLATULENCE
     Route: 048
  8. HUMALOG [Concomitant]
  9. INSULIN [Concomitant]
     Route: 058
  10. METFORMIN [Concomitant]
     Route: 048
  11. CARVEDILOL [Concomitant]
  12. METHOTREXATE [Concomitant]
  13. LEVOTHYROXINE [Concomitant]
     Dosage: EACH MRNG BEFORE MEALS
  14. ISOSORBIDE MONONITRATE [Concomitant]
  15. KEPPRA [Concomitant]

REACTIONS (9)
  - Nausea [Not Recovered/Not Resolved]
  - Diarrhoea [Recovered/Resolved]
  - Constipation [Recovered/Resolved]
  - Decreased appetite [Not Recovered/Not Resolved]
  - Abdominal distension [Not Recovered/Not Resolved]
  - Injection site pain [Unknown]
  - Off label use [Not Recovered/Not Resolved]
  - Anosmia [Recovering/Resolving]
  - Weight decreased [Not Recovered/Not Resolved]
